FAERS Safety Report 5734289-3 (Version None)
Quarter: 2008Q2

REPORT INFORMATION
  Report Type: 
  Country: None (occurrence: None)
  Receive Date: 20080512
  Receipt Date: 20080501
  Transmission Date: 20081010
  Serious: Yes (Other)
  Sender: FDA-Public Use
  Company Number: US-JNJFOC-20080305890

PATIENT
  Sex: Female
  Weight: 77.11 kg

DRUGS (6)
  1. REMICADE [Suspect]
     Route: 042
  2. REMICADE [Suspect]
     Indication: CROHN'S DISEASE
     Route: 042
  3. ORAL CONTRACEPTIVE [Concomitant]
  4. MAXZIDE [Concomitant]
  5. LASIX [Concomitant]
  6. PAMELOR [Concomitant]

REACTIONS (2)
  - LUPUS-LIKE SYNDROME [None]
  - NO THERAPEUTIC RESPONSE [None]
